FAERS Safety Report 4813893-0 (Version None)
Quarter: 2005Q4

REPORT INFORMATION
  Report Type: 
  Country: None (occurrence: None)
  Receive Date: 20051028
  Receipt Date: 20050404
  Transmission Date: 20060501
  Serious: No
  Sender: FDA-Public Use
  Company Number: US-GLAXOSMITHKLINE-A0552580A

PATIENT
  Age: 81 Year
  Sex: Female

DRUGS (10)
  1. ADVAIR DISKUS 100/50 [Suspect]
     Indication: CHRONIC OBSTRUCTIVE PULMONARY DISEASE
     Dosage: 1PUFF TWICE PER DAY
     Route: 055
     Dates: start: 20041101
  2. PREDNIZON [Concomitant]
  3. RYTHMOL [Concomitant]
  4. LANOXIN [Concomitant]
  5. NORVASC [Concomitant]
  6. DIOVAN [Concomitant]
  7. LASIX [Concomitant]
  8. LEVOTHYROXINE SODIUM [Concomitant]
  9. GLYBURIDE [Concomitant]
  10. ASPIRIN [Concomitant]

REACTIONS (2)
  - DEVICE INTERACTION [None]
  - DYSPHONIA [None]
